FAERS Safety Report 8976206 (Version 2)
Quarter: 2013Q1

REPORT INFORMATION
  Report Type: Spontaneous
  Country: FR (occurrence: FR)
  Receive Date: 20121220
  Receipt Date: 20130227
  Transmission Date: 20140127
  Serious: Yes (Hospitalization)
  Sender: FDA-Public Use
  Company Number: FR-ROCHE-1170294

PATIENT
  Age: 87 Year
  Sex: Female

DRUGS (10)
  1. ROCEPHINE [Suspect]
     Indication: PERTUSSIS
     Route: 065
     Dates: start: 20121116, end: 20121119
  2. LASILIX [Suspect]
     Indication: PRODUCT USED FOR UNKNOWN INDICATION
     Route: 042
     Dates: start: 20121116, end: 20121125
  3. ZECLAR [Concomitant]
     Route: 048
     Dates: start: 20121120, end: 20121123
  4. KAYEXALATE [Concomitant]
     Route: 048
     Dates: start: 20121121, end: 20121123
  5. TAVANIC [Concomitant]
     Route: 065
     Dates: start: 20121119, end: 20121129
  6. VIALEBEX [Concomitant]
     Route: 065
     Dates: start: 20121121, end: 20121123
  7. SYMBICORT [Concomitant]
  8. ATACAND [Concomitant]
  9. UVEDOSE [Concomitant]
  10. ALDACTONE [Concomitant]

REACTIONS (4)
  - Erythema multiforme [Recovering/Resolving]
  - Mouth ulceration [Recovering/Resolving]
  - Eosinophilia [Recovered/Resolved]
  - Blood creatinine increased [Recovered/Resolved]
